FAERS Safety Report 5371659-X (Version None)
Quarter: 2007Q2

REPORT INFORMATION
  Report Type: 
  Country: None (occurrence: None)
  Receive Date: 20070627
  Receipt Date: 20070618
  Transmission Date: 20071010
  Serious: Yes (Hospitalization, Other)
  Sender: FDA-Public Use
  Company Number: PHEH2007US04924

PATIENT
  Age: 66 Year
  Sex: Male

DRUGS (3)
  1. ZELNORM [Suspect]
     Indication: CONSTIPATION
     Dosage: 6 MG, BID
     Route: 048
     Dates: start: 20051101, end: 20070401
  2. ACETYLSALICYLIC ACID SRT [Concomitant]
     Dosage: 1 TABLET, Q96H
     Route: 048
  3. METOPROLOL SUCCINATE [Concomitant]
     Dosage: 50 MG, QD
     Route: 048

REACTIONS (5)
  - CARDIAC FLUTTER [None]
  - CYST REMOVAL [None]
  - DRUG INEFFECTIVE [None]
  - EXTRASYSTOLES [None]
  - TESTICULAR CYST [None]
